FAERS Safety Report 7190058-1 (Version None)
Quarter: 2010Q4

REPORT INFORMATION
  Report Type: 
  Country: None (occurrence: None)
  Receive Date: 20101213
  Receipt Date: 20101201
  Transmission Date: 20110411
  Serious: Yes (Hospitalization)
  Sender: FDA-Public Use
  Company Number: 2010US004699

PATIENT
  Age: 80 Year
  Sex: Male
  Weight: 97 kg

DRUGS (7)
  1. AMEVIVE [Suspect]
     Indication: PSORIASIS
     Dosage: 15 MG, WEEKLY; INTRAMUSCULAR
     Route: 030
     Dates: start: 20070601, end: 20091121
  2. TENORMIN [Concomitant]
  3. PRINIVIL [Concomitant]
  4. ZOCOR [Concomitant]
  5. PLAVIX [Concomitant]
  6. ASA (ACETYSALICYLIC ACID) [Concomitant]
  7. CLOBEX [Concomitant]

REACTIONS (4)
  - CARDIAC DISORDER [None]
  - MYOCARDIAL ISCHAEMIA [None]
  - SUBDURAL HAEMATOMA [None]
  - VENTRICULAR TACHYCARDIA [None]
